FAERS Safety Report 5903388-5 (Version None)
Quarter: 2008Q3

REPORT INFORMATION
  Report Type: 
  Country: None (occurrence: None)
  Receive Date: 20080930
  Receipt Date: 20080922
  Transmission Date: 20090109
  Serious: Yes (Death, Life-Threatening)
  Sender: FDA-Public Use
  Company Number: US-GENENTECH-266940

PATIENT
  Sex: Female
  Weight: 67.73 kg

DRUGS (1)
  1. RITUXIMAB [Suspect]
     Dosage: 1000 MG, Q3W
     Route: 042
     Dates: start: 20080430

REACTIONS (1)
  - MYOCARDIAL INFARCTION [None]
